FAERS Safety Report 15782309 (Version 1)
Quarter: 2019Q1

REPORT INFORMATION
  Report Type: Spontaneous
  Country: GB (occurrence: GB)
  Receive Date: 20190102
  Receipt Date: 20190102
  Transmission Date: 20190417
  Serious: Yes (Life-Threatening, Hospitalization)
  Sender: FDA-Public Use
  Company Number: GB-TEVA-2018-GB-994200

PATIENT
  Age: 49 Year
  Sex: Male

DRUGS (6)
  1. DESMOPRESSIN [Suspect]
     Active Substance: DESMOPRESSIN
     Dosage: 200 MICROGRAM DAILY; AT NIGHT
     Route: 065
  2. SPIRONOLACTONE. [Suspect]
     Active Substance: SPIRONOLACTONE
     Dosage: 25 MILLIGRAM DAILY; EACH MORNING
     Route: 065
  3. CASSIA [Concomitant]
     Dosage: 15 MILLIGRAM DAILY; AT NIGHT
  4. BRALTUS [Concomitant]
     Dosage: 10 MICROGRAM DAILY;
     Route: 055
  5. CHLORPROMAZINE. [Concomitant]
     Active Substance: CHLORPROMAZINE
     Dosage: 150 MILLIGRAM DAILY; AT NIGHT. 1 X 100MG TABLET, 1 X 50MG TABLET
  6. FOSTAIR NEXTHALER [Concomitant]
     Dosage: 4 DOSAGE FORMS DAILY; 100MICROGRAMS/DOSE / 6MICROGRAMS
     Route: 055

REACTIONS (2)
  - Angioedema [Recovered/Resolved]
  - Hyponatraemia [Recovered/Resolved]
